FAERS Safety Report 13845517 (Version 1)
Quarter: 2017Q3

REPORT INFORMATION
  Report Type: Spontaneous
  Country: US (occurrence: US)
  Receive Date: 20170808
  Receipt Date: 20170808
  Transmission Date: 20171127
  Serious: Yes (Other)
  Sender: FDA-Public Use
  Company Number: US-ROCHE-790375

PATIENT
  Age: 61 Year
  Sex: Female

DRUGS (1)
  1. BONIVA [Suspect]
     Active Substance: IBANDRONATE SODIUM
     Indication: OSTEOPOROSIS
     Dosage: DURATION 7 TO 8 MONTHS
     Route: 048

REACTIONS (6)
  - Pain [Unknown]
  - Sensory disturbance [Unknown]
  - Lethargy [Unknown]
  - Mobility decreased [Unknown]
  - Muscular weakness [Unknown]
  - Influenza like illness [Unknown]
